FAERS Safety Report 9168156 (Version 1)
Quarter: 2013Q1

REPORT INFORMATION
  Report Type: Spontaneous
  Country: MX (occurrence: None)
  Receive Date: 20130305
  Receipt Date: 20130305
  Transmission Date: 20140127
  Serious: Yes (Hospitalization)
  Sender: FDA-Public Use
  Company Number: TPA2013A01732

PATIENT
  Age: 59 Year
  Sex: Male

DRUGS (3)
  1. DEXIVANT (DEXLANSOPRAZOLE) [Suspect]
     Indication: GASTROOESOPHAGEAL REFLUX DISEASE
     Dosage: 60 MG (60 MG, 1 IN 1 D) ORAL
     Route: 048
     Dates: start: 201209, end: 201209
  2. METEOSPASMYL (DL-METHIONINE, ALVERINE CITRATE) [Concomitant]
  3. MADRILCAN (DIMETICONE, MAGALDRATE) [Concomitant]

REACTIONS (2)
  - Syncope [None]
  - Feeling abnormal [None]
